FAERS Safety Report 9205031 (Version 1)
Quarter: 2013Q2

REPORT INFORMATION
  Report Type: Spontaneous
  Country: US (occurrence: None)
  Receive Date: 20130401
  Receipt Date: 20130401
  Transmission Date: 20140414
  Serious: No
  Sender: FDA-Public Use
  Company Number: None

PATIENT
  Age: 57 Year
  Sex: Male
  Weight: 136.08 kg

DRUGS (3)
  1. LEVEMIR FLEXPEN [Suspect]
     Indication: DIABETES MELLITUS
     Dosage: 60 UNITS QHS SQ
     Route: 058
     Dates: start: 20130207, end: 20130301
  2. JANUMET [Concomitant]
  3. AMARYL [Concomitant]

REACTIONS (1)
  - Urticaria [None]
